FAERS Safety Report 18023739 (Version 2)
Quarter: 2020Q3

REPORT INFORMATION
  Report Type: Spontaneous
  Country: HN (occurrence: HN)
  Receive Date: 20200714
  Receipt Date: 20200723
  Transmission Date: 20201103
  Serious: Yes (Death)
  Sender: FDA-Public Use
  Company Number: HN-ROCHE-2638635

PATIENT
  Sex: Male
  Weight: 122.72 kg

DRUGS (1)
  1. ACTEMRA [Suspect]
     Active Substance: TOCILIZUMAB
     Indication: COVID-19 PNEUMONIA
     Route: 042
     Dates: start: 20200703, end: 20200704

REACTIONS (4)
  - Respiratory arrest [Fatal]
  - Intentional product use issue [Fatal]
  - Pneumonia [Fatal]
  - Off label use [Fatal]
